FAERS Safety Report 5592921-1 (Version None)
Quarter: 2008Q1

REPORT INFORMATION
  Report Type: 
  Country: None (occurrence: None)
  Receive Date: 20080116
  Receipt Date: 20080111
  Transmission Date: 20080703
  Serious: Yes (Life-Threatening, Other)
  Sender: FDA-Public Use
  Company Number: GB-ALLERGAN-0800391US

PATIENT
  Sex: Male

DRUGS (2)
  1. COMBIGAN [Suspect]
     Indication: GLAUCOMA
     Dosage: UNK, BID
     Route: 047
     Dates: start: 20070926
  2. TRAVATAN [Concomitant]
     Indication: GLAUCOMA
     Dosage: UNK, BID
     Route: 047

REACTIONS (3)
  - CIRCULATORY COLLAPSE [None]
  - FATIGUE [None]
  - HEART RATE DECREASED [None]
